FAERS Safety Report 20927036 (Version 1)
Quarter: 2022Q2

REPORT INFORMATION
  Report Type: Spontaneous
  Country: US (occurrence: US)
  Receive Date: 20220607
  Receipt Date: 20220607
  Transmission Date: 20220720
  Serious: No
  Sender: FDA-Public Use
  Company Number: US-PERRIGO-21US028539

PATIENT
  Age: 81 Year
  Sex: Male
  Weight: 74.376 kg

DRUGS (5)
  1. MINOXIDIL [Suspect]
     Active Substance: MINOXIDIL
     Indication: Alopecia
     Dosage: 1.5 CAPFULS, BID
     Route: 061
     Dates: start: 20210915
  2. NIACIN [Concomitant]
     Active Substance: NIACIN
     Indication: Supplementation therapy
     Dosage: 1 TABLET, QAM
     Route: 065
  3. METOPROLOL [Concomitant]
     Active Substance: METOPROLOL
     Indication: Cardiac disorder
     Dosage: UNK
     Route: 065
     Dates: start: 202011
  4. ATORVASTATIN [Concomitant]
     Active Substance: ATORVASTATIN
     Indication: Cardiac disorder
     Dosage: UNK
     Route: 065
     Dates: start: 202011
  5. ASPIRIN [Concomitant]
     Active Substance: ASPIRIN
     Indication: Cardiac disorder
     Dosage: 81 MG
     Route: 065
     Dates: start: 202011

REACTIONS (4)
  - Application site pruritus [Not Recovered/Not Resolved]
  - Product administered at inappropriate site [Unknown]
  - Overdose [Unknown]
  - Product administration error [Unknown]

NARRATIVE: CASE EVENT DATE: 20210915
